FAERS Safety Report 19041518 (Version 1)
Quarter: 2021Q1

REPORT INFORMATION
  Report Type: Spontaneous
  Country: CN (occurrence: CN)
  Receive Date: 20210323
  Receipt Date: 20210323
  Transmission Date: 20210420
  Serious: Yes (Other)
  Sender: FDA-Public Use
  Company Number: CN-ROCHE-2794218

PATIENT
  Age: 43 Year
  Sex: Female

DRUGS (12)
  1. BETAMIPRON [Concomitant]
     Active Substance: BETAMIPRON
     Dates: start: 20150830
  2. ACTEMRA [Suspect]
     Active Substance: TOCILIZUMAB
     Indication: CYTOKINE STORM
     Route: 065
     Dates: start: 20150907
  3. FLUOROURACIL. [Concomitant]
     Active Substance: FLUOROURACIL
     Dates: start: 20150829
  4. AMIKACIN. [Concomitant]
     Active Substance: AMIKACIN
     Dates: start: 20150830
  5. GRANULOCYTE COLONY?STIMULATING FACTOR INJECTION (G?CSF) (UNK INGREDIEN [Concomitant]
     Dates: start: 2015
  6. AZATHIOPRINE. [Concomitant]
     Active Substance: AZATHIOPRINE
     Dates: start: 20150803
  7. CYCLOPHOSPHAMIDE. [Concomitant]
     Active Substance: CYCLOPHOSPHAMIDE
     Dates: start: 20150829
  8. IMIPENEM AND CILASTATIN [Concomitant]
     Active Substance: CILASTATIN SODIUM\IMIPENEM
     Dates: start: 20150911
  9. METHYLPREDNISOLONE. [Concomitant]
     Active Substance: METHYLPREDNISOLONE
     Dates: start: 20150911
  10. ACTEMRA [Suspect]
     Active Substance: TOCILIZUMAB
     Route: 065
     Dates: start: 20150911
  11. VANCOMYCIN [Concomitant]
     Active Substance: VANCOMYCIN
     Dates: start: 2015
  12. VORICONAZOLE. [Concomitant]
     Active Substance: VORICONAZOLE
     Dates: start: 2015

REACTIONS (3)
  - Acute kidney injury [Unknown]
  - Cardiac failure [Unknown]
  - Off label use [Unknown]
